FAERS Safety Report 26087275 (Version 1)
Quarter: 2025Q4

REPORT INFORMATION
  Report Type: Spontaneous
  Country: US (occurrence: None)
  Receive Date: 20251124
  Receipt Date: 20251124
  Transmission Date: 20260117
  Serious: Yes (Hospitalization)
  Sender: FDA-CTU
  Company Number: None

PATIENT
  Age: 90 Year
  Sex: Male

DRUGS (11)
  1. VYNDAMAX [Suspect]
     Active Substance: TAFAMIDIS
     Indication: Product used for unknown indication
     Dosage: FREQUENCY : DAILY;?
     Route: 048
  2. ATORVASTATIN TAB 10MG [Concomitant]
  3. DONEPEZIL [Concomitant]
     Active Substance: DONEPEZIL
  4. DOXYCYCL HYC TAB 1 00MG [Concomitant]
  5. ELIOUIS TAB 2.5MG [Concomitant]
  6. FINASTERIDE [Concomitant]
     Active Substance: FINASTERIDE
  7. FOLIC ACID TAB 400MCG [Concomitant]
  8. FUROSEMIDE [Concomitant]
     Active Substance: FUROSEMIDE
  9. GABAPENTIN [Concomitant]
     Active Substance: GABAPENTIN
  10. GEMTESA TAB 75MG [Concomitant]
  11. IPRATROPIUM SPR 0.03% [Concomitant]

REACTIONS (1)
  - Rib fracture [None]

NARRATIVE: CASE EVENT DATE: 20251018
